FAERS Safety Report 5796551-8 (Version None)
Quarter: 2008Q2

REPORT INFORMATION
  Report Type: 
  Country: None (occurrence: None)
  Receive Date: 20080630
  Receipt Date: 20080630
  Transmission Date: 20081010
  Serious: No
  Sender: FDA-Public Use
  Company Number: None

PATIENT
  Age: 54 Year
  Sex: Female
  Weight: 62.1428 kg

DRUGS (2)
  1. CIPRO [Suspect]
     Indication: URINARY TRACT INFECTION
     Dosage: 1 TABLET TWICE A DAY
     Dates: start: 20080117, end: 20080121
  2. CIPRO [Suspect]
     Indication: URINARY TRACT INFECTION
     Dosage: 1 TABLET TWICE A DAY
     Dates: start: 20080226, end: 20080303

REACTIONS (8)
  - ABDOMINAL PAIN UPPER [None]
  - ANXIETY [None]
  - DEPRESSION [None]
  - NAUSEA [None]
  - NERVOUS SYSTEM DISORDER [None]
  - NERVOUSNESS [None]
  - NIGHT SWEATS [None]
  - WEIGHT DECREASED [None]
